FAERS Safety Report 18188466 (Version 2)
Quarter: 2021Q4

REPORT INFORMATION
  Report Type: Report from Study
  Country: US (occurrence: US)
  Receive Date: 20200824
  Receipt Date: 20211202
  Transmission Date: 20220303
  Serious: Yes (Other)
  Sender: FDA-Public Use
  Company Number: US-MYLANLABS-2019M1019558

PATIENT
  Sex: Male
  Weight: 104.3 kg

DRUGS (8)
  1. GLATIRAMER ACETATE [Suspect]
     Active Substance: GLATIRAMER ACETATE
     Indication: Relapsing-remitting multiple sclerosis
     Dosage: 40 MILLIGRAM, 3XW
     Route: 058
     Dates: start: 201808
  2. GLATIRAMER ACETATE [Suspect]
     Active Substance: GLATIRAMER ACETATE
     Dosage: 40 MILLIGRAM, 3XW
     Route: 058
  3. AMLODIPINE\VALSARTAN [Concomitant]
     Active Substance: AMLODIPINE\VALSARTAN
     Dosage: 3/150, QD
  4. AMLODIPINE\VALSARTAN [Concomitant]
     Active Substance: AMLODIPINE\VALSARTAN
     Dosage: 5/320 ,QD
  5. DIAZEPAM [Concomitant]
     Active Substance: DIAZEPAM
     Dosage: 10 MILLIGRAM, QD
  6. MELOXICAM [Concomitant]
     Active Substance: MELOXICAM
     Dosage: UNK, PRN
  7. B12                                /00056201/ [Concomitant]
     Dosage: UNK, MONTHLY
  8. FLONASE                            /00908302/ [Concomitant]
     Dosage: UNK

REACTIONS (12)
  - Multiple sclerosis relapse [Not Recovered/Not Resolved]
  - Neuropathy peripheral [Not Recovered/Not Resolved]
  - Renal disorder [Unknown]
  - Electric shock sensation [Unknown]
  - Therapeutic response unexpected [Unknown]
  - Product packaging difficult to open [Unknown]
  - Heart rate increased [Unknown]
  - Muscle spasms [Unknown]
  - Urticaria [Unknown]
  - Injection site mass [Unknown]
  - Dyspnoea [Unknown]
  - Chest pain [Unknown]

NARRATIVE: CASE EVENT DATE: 20200101
